FAERS Safety Report 7388819-9 (Version None)
Quarter: 2011Q2

REPORT INFORMATION
  Report Type: 
  Country: None (occurrence: None)
  Receive Date: 20110401
  Receipt Date: 20110323
  Transmission Date: 20111010
  Serious: Yes (Other)
  Sender: FDA-Public Use
  Company Number: US-BAXTER-2011BH007878

PATIENT
  Age: 4 Year
  Sex: Female

DRUGS (6)
  1. OXYGEN [Concomitant]
     Indication: GENERAL ANAESTHESIA
     Route: 065
  2. FENTANYL [Concomitant]
     Indication: GENERAL ANAESTHESIA
     Route: 042
  3. PROPOFOL [Concomitant]
     Indication: GENERAL ANAESTHESIA
     Route: 065
  4. SEVOFLURANE [Suspect]
     Indication: GENERAL ANAESTHESIA
     Route: 065
  5. NITROUS OXIDE [Concomitant]
     Indication: GENERAL ANAESTHESIA
     Route: 065
  6. DEXAMETHASONE [Concomitant]
     Indication: GENERAL ANAESTHESIA
     Route: 042

REACTIONS (1)
  - AIRWAY COMPLICATION OF ANAESTHESIA [None]
